FAERS Safety Report 25685813 (Version 1)
Quarter: 2025Q3

REPORT INFORMATION
  Report Type: Spontaneous
  Country: US (occurrence: US)
  Receive Date: 20250815
  Receipt Date: 20250815
  Transmission Date: 20251020
  Serious: Yes (Other)
  Sender: COOPERSURGICAL
  Company Number: US-COOPERSURGICAL, INC.-2025CPS005936

PATIENT
  Age: 43 Year
  Sex: Female
  Weight: 49.887 kg

DRUGS (1)
  1. PARAGARD T 380A [Suspect]
     Active Substance: COPPER
     Indication: Contraception
     Route: 015
     Dates: start: 20090101

REACTIONS (17)
  - Syncope [Recovered/Resolved]
  - Surgery [Recovered/Resolved]
  - Device breakage [Recovered/Resolved]
  - Foreign body in reproductive tract [Recovered/Resolved]
  - Complication of device removal [Recovered/Resolved]
  - Embedded device [Recovered/Resolved]
  - Sensation of foreign body [Recovered/Resolved]
  - Emotional distress [Recovered/Resolved]
  - Cervix scarring [Not Recovered/Not Resolved]
  - Procedural pain [Recovered/Resolved]
  - Intentional medical device removal by patient [Recovered/Resolved]
  - Pain [Recovered/Resolved]
  - Abnormal uterine bleeding [Recovered/Resolved]
  - Pelvic pain [Recovered/Resolved]
  - Muscle spasms [Recovered/Resolved]
  - Abdominal pain lower [Recovered/Resolved]
  - Vaginal haemorrhage [Recovered/Resolved]

NARRATIVE: CASE EVENT DATE: 20120801
